FAERS Safety Report 6044015-9 (Version None)
Quarter: 2009Q1

REPORT INFORMATION
  Report Type: 
  Country: None (occurrence: None)
  Receive Date: 20090120
  Receipt Date: 20090115
  Transmission Date: 20090719
  Serious: Yes (Death)
  Sender: FDA-Public Use
  Company Number: US-BRISTOL-MYERS SQUIBB COMPANY-14472856

PATIENT
  Age: 52 Year
  Sex: Male

DRUGS (8)
  1. WARFARIN SODIUM [Suspect]
     Route: 048
  2. IBUPROFEN [Suspect]
     Route: 048
  3. ACETAMINOPHEN [Suspect]
     Route: 048
  4. OXAZEPAM [Suspect]
     Route: 048
  5. TEMAZEPAM [Suspect]
     Route: 048
  6. CARVEDILOL [Suspect]
     Route: 048
  7. GLYCOSIDE [Suspect]
     Route: 048
  8. PROPAFENONE HCL [Suspect]
     Route: 048

REACTIONS (1)
  - COMPLETED SUICIDE [None]
